FAERS Safety Report 24546312 (Version 1)
Quarter: 2024Q4

REPORT INFORMATION
  Report Type: Spontaneous
  Country: KW (occurrence: KW)
  Receive Date: 20241024
  Receipt Date: 20241024
  Transmission Date: 20250115
  Serious: Yes (Hospitalization, Other)
  Sender: OXFORD PHARMACEUTICALS, LLC
  Company Number: KW-Oxford Pharmaceuticals, LLC-2163290

PATIENT
  Age: 30 Year
  Sex: Male

DRUGS (4)
  1. LEVETIRACETAM [Suspect]
     Active Substance: LEVETIRACETAM
     Indication: Seizure prophylaxis
  2. CEFTRIAXONE [Suspect]
     Active Substance: CEFTRIAXONE
  3. MIDAZOLAM [Concomitant]
     Active Substance: MIDAZOLAM
  4. ACYCLOVIR [Suspect]
     Active Substance: ACYCLOVIR

REACTIONS (1)
  - Rhabdomyolysis [Unknown]
